FAERS Safety Report 4439674-8 (Version None)
Quarter: 2004Q3

REPORT INFORMATION
  Report Type: 
  Country: None (occurrence: None)
  Receive Date: 20040902
  Receipt Date: 20040820
  Transmission Date: 20050211
  Serious: Yes (Life-Threatening)
  Sender: FDA-Public Use
  Company Number: 200413152FR

PATIENT
  Age: 70 Year
  Sex: Male

DRUGS (8)
  1. FLAGYL [Suspect]
     Indication: LUNG DISORDER
     Route: 048
  2. AUGMENTIN '125' [Suspect]
     Indication: LUNG DISORDER
     Route: 042
  3. FRAXIPARINE [Suspect]
     Route: 058
     Dates: start: 20040403, end: 20040418
  4. TEGELINE [Suspect]
     Indication: IMMUNE SYSTEM DISORDER
     Route: 042
     Dates: start: 20040407, end: 20040416
  5. ACTONEL [Concomitant]
  6. TOPLEXIL ^THERAPLIX^ [Concomitant]
  7. PREVISCAN [Concomitant]
  8. DIFFU K [Concomitant]

REACTIONS (6)
  - BRONCHOSPASM [None]
  - CHILLS [None]
  - HYPOTENSION [None]
  - NAUSEA [None]
  - PYREXIA [None]
  - VOMITING [None]
